FAERS Safety Report 18198756 (Version 1)
Quarter: 2020Q3

REPORT INFORMATION
  Report Type: Report from Study
  Country: IN (occurrence: IN)
  Receive Date: 20200826
  Receipt Date: 20200826
  Transmission Date: 20201103
  Serious: Yes (Hospitalization, Other)
  Sender: FDA-Public Use
  Company Number: IN-MYLANLABS-2020M1074375

PATIENT

DRUGS (1)
  1. TACROLIMUS. [Suspect]
     Active Substance: TACROLIMUS
     Indication: NEPHROTIC SYNDROME
     Dosage: 0.075 MILLIGRAM/KILOGRAM; DIVIDED IN 2 DOSES..

REACTIONS (2)
  - Peritonitis bacterial [Unknown]
  - Drug ineffective [Unknown]
